FAERS Safety Report 6440882-5 (Version None)
Quarter: 2009Q4

REPORT INFORMATION
  Report Type: 
  Country: None (occurrence: None)
  Receive Date: 20091116
  Receipt Date: 20091102
  Transmission Date: 20100525
  Serious: Yes (Hospitalization)
  Sender: FDA-Public Use
  Company Number: PHHY2009DE48051

PATIENT
  Age: 49 Year
  Sex: Male

DRUGS (5)
  1. LEPONEX [Suspect]
     Dosage: 250 MG PER DAY
     Dates: start: 20051130
  2. ABILIFY [Concomitant]
     Dosage: 7.5 MG PER DAY
     Dates: start: 20051122, end: 20051204
  3. LEPONEX ^WANDER^ [Concomitant]
     Dosage: 250 MG PER DAY
     Dates: start: 20051021, end: 20051022
  4. SOLIAN [Concomitant]
     Dosage: 100 MG PER DAY
     Dates: start: 20051217, end: 20051218
  5. STANGYL [Concomitant]
     Dosage: 100 MG PER DAY
     Dates: start: 20051013, end: 20051204

REACTIONS (4)
  - ALANINE AMINOTRANSFERASE INCREASED [None]
  - ASPARTATE AMINOTRANSFERASE INCREASED [None]
  - GAMMA-GLUTAMYLTRANSFERASE INCREASED [None]
  - HEPATIC FUNCTION ABNORMAL [None]
